FAERS Safety Report 19067485 (Version 1)
Quarter: 2021Q1

REPORT INFORMATION
  Report Type: Spontaneous
  Country: US (occurrence: US)
  Receive Date: 20210329
  Receipt Date: 20210329
  Transmission Date: 20210420
  Serious: Yes (Other)
  Sender: FDA-Public Use
  Company Number: US-BEH-2021129383

PATIENT
  Age: 11 Year
  Sex: Female

DRUGS (3)
  1. HUMAN IMMUNOGLOBULIN (INN) [Suspect]
     Active Substance: HUMAN IMMUNOGLOBULIN G
     Indication: FACTOR XI DEFICIENCY
  2. HUMAN IMMUNOGLOBULIN (INN) [Suspect]
     Active Substance: HUMAN IMMUNOGLOBULIN G
     Indication: IMMUNE THROMBOCYTOPENIA
     Dosage: UNK EVERY 6 MONTHS
     Route: 042
  3. HUMAN IMMUNOGLOBULIN (INN) [Suspect]
     Active Substance: HUMAN IMMUNOGLOBULIN G
     Indication: FACTOR VII DEFICIENCY
     Dosage: UNK ONE INFUSION
     Route: 042

REACTIONS (2)
  - Thrombocytopenia [Unknown]
  - Therapeutic product effect incomplete [Unknown]
